FAERS Safety Report 8160959-6 (Version None)
Quarter: 2012Q1

REPORT INFORMATION
  Report Type: 
  Country: None (occurrence: None)
  Receive Date: 20120223
  Receipt Date: 20120215
  Transmission Date: 20120608
  Serious: Yes (Hospitalization, Other)
  Sender: FDA-Public Use
  Company Number: US-ASTRAZENECA-2011SE16043

PATIENT
  Age: 81 Year
  Sex: Female
  Weight: 49 kg

DRUGS (3)
  1. CRESTOR [Suspect]
     Indication: BLOOD CHOLESTEROL INCREASED
     Route: 048
     Dates: start: 20050101
  2. CLONIDINA HCL [Concomitant]
     Indication: HYPERTENSION
     Route: 048
     Dates: start: 20110501
  3. PLAVIX [Concomitant]
     Indication: CEREBROVASCULAR ACCIDENT PROPHYLAXIS
     Route: 048
     Dates: start: 20050101

REACTIONS (6)
  - WRIST FRACTURE [None]
  - FALL [None]
  - WEIGHT DECREASED [None]
  - UPPER LIMB FRACTURE [None]
  - PNEUMONIA [None]
  - APHAGIA [None]
